FAERS Safety Report 19657050 (Version 1)
Quarter: 2021Q3

REPORT INFORMATION
  Report Type: Spontaneous
  Country: US (occurrence: US)
  Receive Date: 20210804
  Receipt Date: 20210804
  Transmission Date: 20211014
  Serious: No
  Sender: FDA-Public Use
  Company Number: US-BIODELIVERY SCIENCES INTERNATIONAL-2021BDSI0240

PATIENT
  Age: 64 Year
  Sex: Female

DRUGS (1)
  1. BUPRENORPHINE. [Suspect]
     Active Substance: BUPRENORPHINE
     Indication: PRODUCT USED FOR UNKNOWN INDICATION
     Dosage: UNKNOWN, UNKNOWN
     Route: 065

REACTIONS (9)
  - Sciatica [Unknown]
  - Tinnitus [Unknown]
  - Hypersomnia [Recovering/Resolving]
  - Decreased appetite [Unknown]
  - Muscular weakness [Recovering/Resolving]
  - Burning sensation [Unknown]
  - Musculoskeletal stiffness [Unknown]
  - Headache [Unknown]
  - Asthenia [Unknown]
